FAERS Safety Report 21564918 (Version 1)
Quarter: 2022Q4

REPORT INFORMATION
  Report Type: Other
  Country: GB (occurrence: GB)
  Receive Date: 20221108
  Receipt Date: 20221108
  Transmission Date: 20230113
  Serious: No
  Sender: FDA-Public Use
  Company Number: GB-MHRA-TPP21872679C6872734YC1666440665110

PATIENT
  Age: 39 Year
  Sex: Female
  Weight: 77 kg

DRUGS (4)
  1. SERTRALINE [Suspect]
     Active Substance: SERTRALINE HYDROCHLORIDE
     Indication: Ill-defined disorder
     Dosage: UNK
     Route: 065
     Dates: start: 20221013
  2. LOFEPRAMINE [Concomitant]
     Active Substance: LOFEPRAMINE
     Indication: Ill-defined disorder
     Dosage: UNK, BID, ONE IN A MORNING AND TWO AT NIGHT
     Route: 065
     Dates: start: 20220425
  3. OMEPRAZOLE [Concomitant]
     Active Substance: OMEPRAZOLE
     Indication: Ill-defined disorder
     Dosage: 1 DOSAGE FORM, QD
     Route: 065
     Dates: start: 20220916, end: 20221014
  4. YASMIN [Concomitant]
     Active Substance: DROSPIRENONE\ETHINYL ESTRADIOL
     Indication: Ill-defined disorder
     Dosage: 1 DOSAGE FORM, TAKE ONE AS DIRECTED
     Route: 065
     Dates: start: 20220425

REACTIONS (4)
  - Joint stiffness [Recovered/Resolved]
  - Pain in jaw [Recovered/Resolved]
  - Migraine [Unknown]
  - Tremor [Unknown]

NARRATIVE: CASE EVENT DATE: 20221022
